FAERS Safety Report 26122216 (Version 1)
Quarter: 2025Q4

REPORT INFORMATION
  Report Type: Spontaneous
  Country: US (occurrence: US)
  Receive Date: 20251204
  Receipt Date: 20251204
  Transmission Date: 20260118
  Serious: Yes (Other)
  Sender: PURDUE
  Company Number: US-PURDUE PHARMA-USA-2025-0322638

PATIENT
  Age: 21 Year
  Sex: Female

DRUGS (3)
  1. OXYCODONE HYDROCHLORIDE [Suspect]
     Active Substance: OXYCODONE HYDROCHLORIDE
     Indication: Product used for unknown indication
     Dosage: UNK
     Route: 065
  2. VALIUM [Suspect]
     Active Substance: DIAZEPAM
     Indication: Product used for unknown indication
     Dosage: UNK
     Route: 065
  3. HEROIN [Suspect]
     Active Substance: DIAMORPHINE
     Indication: Product used for unknown indication
     Dosage: UNK
     Route: 065

REACTIONS (15)
  - Drug abuse [Unknown]
  - Drug dependence [Unknown]
  - Toxicity to various agents [Unknown]
  - Syncope [Unknown]
  - Pruritus [Unknown]
  - Euphoric mood [Unknown]
  - Dizziness [Unknown]
  - Somnolence [Unknown]
  - Injury [Unknown]
  - Nightmare [Unknown]
  - Ageusia [Unknown]
  - Fear [Unknown]
  - Victim of sexual abuse [Unknown]
  - Victim of abuse [Unknown]
  - Pain [Unknown]
